FAERS Safety Report 8929285 (Version 1)
Quarter: 2012Q4

REPORT INFORMATION
  Report Type: Spontaneous
  Country: US (occurrence: None)
  Receive Date: 20121126
  Receipt Date: 20121126
  Transmission Date: 20130627
  Serious: Yes (Other)
  Sender: FDA-Public Use
  Company Number: None

PATIENT
  Sex: Female
  Weight: 117.03 kg

DRUGS (1)
  1. METOPROLOL TARTRATE [Suspect]
     Indication: BLOOD PRESSURE HIGH
     Dosage: 2 pills per day
     Dates: start: 20121009, end: 20121012

REACTIONS (3)
  - Diplopia [None]
  - Impaired work ability [None]
  - Economic problem [None]
